FAERS Safety Report 5535292-9 (Version None)
Quarter: 2007Q4

REPORT INFORMATION
  Report Type: 
  Country: None (occurrence: None)
  Receive Date: 20071204
  Receipt Date: 20071120
  Transmission Date: 20080405
  Serious: Yes (Other)
  Sender: FDA-Public Use
  Company Number: 164559USA

PATIENT
  Age: 59 Year
  Sex: Female

DRUGS (2)
  1. COPAXONE [Suspect]
     Indication: MULTIPLE SCLEROSIS
     Dosage: (20 MG), SUCUTANEOUS
     Route: 058
     Dates: start: 19980101, end: 19990101
  2. INTERFERON BETA [Suspect]

REACTIONS (1)
  - BRAIN NEOPLASM [None]
